FAERS Safety Report 7951369-2 (Version None)
Quarter: 2011Q4

REPORT INFORMATION
  Report Type: 
  Country: None (occurrence: None)
  Receive Date: 20111129
  Receipt Date: 20111114
  Transmission Date: 20120403
  Serious: Yes (Hospitalization)
  Sender: FDA-Public Use
  Company Number: 1000025711

PATIENT
  Age: 80 Year
  Sex: Female

DRUGS (7)
  1. ALBUTEROL [Suspect]
  2. RAMIPRIL [Concomitant]
  3. ADCAL-D3 (CALCIUM CARBONATE, CHOLECALCIFEROL) (-CALCIUM CARBONATE, CHO [Concomitant]
  4. FLIXOTIDE (FLUTICASONE PROPIONATE) (FLUTICASONE PROPIONATE) [Concomitant]
  5. CITALOPRAM HYDROBROMIDE [Suspect]
     Dosage: 10 MG (10 MG, 1 IN 1 D),ORAL
     Route: 048
  6. TEMAZEPAM [Concomitant]
  7. CO-CODAMOL (CODEINE PHOSPHATE, PARACETAMOL) (CODEINE PHOSPHATE, PARACE [Concomitant]

REACTIONS (3)
  - HYPOTENSION [None]
  - FALL [None]
  - HYPONATRAEMIA [None]
